FAERS Safety Report 11669143 (Version 1)
Quarter: 2015Q4

REPORT INFORMATION
  Report Type: Spontaneous
  Country: US (occurrence: US)
  Receive Date: 20151027
  Receipt Date: 20151027
  Transmission Date: 20160304
  Serious: No
  Sender: FDA-Public Use
  Company Number: US-ELI_LILLY_AND_COMPANY-US201004001661

PATIENT
  Sex: Female

DRUGS (2)
  1. CALCIUM + VITAMIN D [Concomitant]
     Active Substance: CALCIUM\VITAMIN D
  2. FORTEO [Suspect]
     Active Substance: TERIPARATIDE
     Indication: OSTEOPOROSIS
     Dosage: 20 UG, DAILY (1/D)
     Dates: start: 200908

REACTIONS (8)
  - Malaise [Unknown]
  - Dyspepsia [Recovered/Resolved]
  - Muscle spasms [Recovered/Resolved]
  - Gastrooesophageal reflux disease [Recovered/Resolved]
  - Blood calcium increased [Unknown]
  - Weight increased [Recovering/Resolving]
  - Calcium metabolism disorder [Unknown]
  - Nausea [Recovered/Resolved]
